FAERS Safety Report 4740151-5 (Version None)
Quarter: 2005Q3

REPORT INFORMATION
  Report Type: 
  Country: None (occurrence: None)
  Receive Date: 20050805
  Receipt Date: 20050801
  Transmission Date: 20060218
  Serious: Yes (Disabling)
  Sender: FDA-Public Use
  Company Number: 05-08-1338

PATIENT
  Age: 74 Year
  Sex: Female
  Weight: 66 kg

DRUGS (4)
  1. METFORMIN HCL [Suspect]
     Indication: DIABETES MELLITUS
     Dosage: 500MG ORAL
     Route: 048
     Dates: start: 20050620, end: 20050709
  2. GLICLAZIDE [Concomitant]
  3. CARBIMAZOLE [Concomitant]
  4. LISINOPRIL [Concomitant]

REACTIONS (1)
  - FILARIASIS [None]
